FAERS Safety Report 9268633 (Version 1)
Quarter: 2013Q2

REPORT INFORMATION
  Report Type: Spontaneous
  Country: US (occurrence: US)
  Receive Date: 20130502
  Receipt Date: 20130502
  Transmission Date: 20140414
  Serious: No
  Sender: FDA-Public Use
  Company Number: US-ALEXION-A201202495

PATIENT
  Age: 20 Year
  Sex: Female

DRUGS (1)
  1. SOLIRIS 300MG [Suspect]
     Indication: HAEMOLYTIC URAEMIC SYNDROME
     Dosage: 1800 MG, SINGLE
     Route: 042
     Dates: start: 20121220, end: 20121220

REACTIONS (2)
  - Incorrect dose administered [Unknown]
  - Headache [Unknown]
